FAERS Safety Report 5782372-9 (Version None)
Quarter: 2008Q2

REPORT INFORMATION
  Report Type: 
  Country: None (occurrence: None)
  Receive Date: 20080623
  Receipt Date: 20080611
  Transmission Date: 20081010
  Serious: Yes (Other)
  Sender: FDA-Public Use
  Company Number: US-PFIZER INC-2008050416

PATIENT
  Age: 35 Year
  Sex: Male

DRUGS (1)
  1. CHANTIX [Suspect]
     Indication: SMOKING CESSATION THERAPY
     Dates: start: 20080427, end: 20080506

REACTIONS (5)
  - AGGRESSION [None]
  - HOSTILITY [None]
  - MEMORY IMPAIRMENT [None]
  - SCREAMING [None]
  - SMOKER [None]
